FAERS Safety Report 23158698 (Version 2)
Quarter: 2023Q4

REPORT INFORMATION
  Report Type: Report from Study
  Country: EG (occurrence: EG)
  Receive Date: 20231108
  Receipt Date: 20231121
  Transmission Date: 20240110
  Serious: Yes (Other)
  Sender: FDA-Public Use
  Company Number: EG-002147023-NVSC2022EG080286

PATIENT
  Age: 39 Year
  Sex: Male

DRUGS (7)
  1. COSENTYX [Suspect]
     Active Substance: SECUKINUMAB
     Indication: Psoriatic arthropathy
     Dosage: 150 MG, QMO (ONE PREFILLED PEN)
     Route: 058
     Dates: start: 202109, end: 202111
  2. COSENTYX [Suspect]
     Active Substance: SECUKINUMAB
     Dosage: 150 MG, QW (ONE PREFILLED PEN, 4 WEEKS AS A LOADING DOSE)
     Route: 058
  3. COSENTYX [Suspect]
     Active Substance: SECUKINUMAB
     Dosage: 150 MG, QMO
     Route: 058
     Dates: start: 2021
  4. COSENTYX [Suspect]
     Active Substance: SECUKINUMAB
     Dosage: 150 MG, QMO (STOP DATE WAS JUN OR JUL 2022)
     Route: 058
     Dates: start: 20220405, end: 2022
  5. COSENTYX [Suspect]
     Active Substance: SECUKINUMAB
     Dosage: 150 MG, QW (THEN THE PATIENT^S HCP UPGRADED THE DOSE TO BE 1 PREFILLED PEN WEEKLY AGAIN THEN 1 PREFI
     Route: 058
     Dates: start: 2022
  6. COSENTYX [Suspect]
     Active Substance: SECUKINUMAB
     Dosage: 150 MG, QMO (1 PEN EVERY MONTH)
     Route: 058
  7. COSENTYX [Suspect]
     Active Substance: SECUKINUMAB
     Dosage: 4 DOSAGE FORM, QMO (4 PENS EVERY MONTH UPON PHYSICIAN DECISION DEPENDS ON PATIENT^S CONDITION)
     Route: 058

REACTIONS (11)
  - Psoriatic arthropathy [Unknown]
  - Gait inability [Unknown]
  - Movement disorder [Unknown]
  - Neuritis [Unknown]
  - COVID-19 [Unknown]
  - Hypersomnia [Unknown]
  - Respiratory tract infection [Unknown]
  - Nasopharyngitis [Unknown]
  - Psoriasis [Not Recovered/Not Resolved]
  - Product dose omission issue [Unknown]
  - Product use issue [Not Recovered/Not Resolved]

NARRATIVE: CASE EVENT DATE: 20211101
